FAERS Safety Report 5351818-2 (Version None)
Quarter: 2007Q2

REPORT INFORMATION
  Report Type: 
  Country: None (occurrence: None)
  Receive Date: 20070521
  Receipt Date: 20070305
  Transmission Date: 20071010
  Serious: No
  Sender: FDA-Public Use
  Company Number: WAES 0703USA00605

PATIENT
  Age: 72 Year
  Sex: Female

DRUGS (9)
  1. JANUVIA [Suspect]
     Indication: DIABETES MELLITUS
     Dosage: 100 MG/DAILY/PO
     Route: 048
     Dates: start: 20070201
  2. DIOVAN [Concomitant]
  3. GLIPIZIDE [Concomitant]
  4. GLUCOTROL [Concomitant]
  5. NEXIUM [Concomitant]
  6. NORVASC [Concomitant]
  7. [THERAPY UNSPECIFIED] [Concomitant]
  8. LOVASTATIN [Concomitant]
  9. METFORMIN [Concomitant]

REACTIONS (2)
  - ALOPECIA [None]
  - CONSTIPATION [None]
